FAERS Safety Report 25554230 (Version 1)
Quarter: 2025Q3

REPORT INFORMATION
  Report Type: Spontaneous
  Country: US (occurrence: None)
  Receive Date: 20250714
  Receipt Date: 20250714
  Transmission Date: 20251020
  Serious: Yes (Hospitalization)
  Sender: FDA-CTU
  Company Number: None

PATIENT
  Age: 62 Year
  Sex: Female

DRUGS (11)
  1. BENLYSTA [Suspect]
     Active Substance: BELIMUMAB
     Dosage: FREQUENCY : WEEKLY;?
     Route: 058
     Dates: start: 20240402
  2. ARIPIPRAZOLE TAB 5MG [Concomitant]
  3. BENADRYL ALG TAB 25MG [Concomitant]
  4. BENZONATATE CAP 200MG [Concomitant]
  5. CALCIUM TAB 600MG [Concomitant]
  6. CARVEDILOL [Concomitant]
     Active Substance: CARVEDILOL
  7. DULOXETINE [Concomitant]
     Active Substance: DULOXETINE
  8. FOLIC ACID [Concomitant]
     Active Substance: FOLIC ACID
  9. FUROSEMIDE [Concomitant]
     Active Substance: FUROSEMIDE
  10. ACETAMINOPHEN\HYDROCODONE [Concomitant]
     Active Substance: ACETAMINOPHEN\HYDROCODONE
  11. LEVOTHYROXIN TAB [Concomitant]

REACTIONS (1)
  - Urinary tract infection [None]

NARRATIVE: CASE EVENT DATE: 20250630
